FAERS Safety Report 10807365 (Version 1)
Quarter: 2015Q1

REPORT INFORMATION
  Report Type: Report from Study
  Country: US (occurrence: US)
  Receive Date: 20150217
  Receipt Date: 20150217
  Transmission Date: 20150721
  Serious: No
  Sender: FDA-Public Use
  Company Number: US-ABBVIE-14K-163-1248319-00

PATIENT
  Age: 50 Year
  Sex: Female

DRUGS (11)
  1. HUMIRA [Suspect]
     Active Substance: ADALIMUMAB
     Dates: start: 2014, end: 2014
  2. IBUPROFEN. [Suspect]
     Active Substance: IBUPROFEN
     Indication: ARTHRALGIA
  3. IBUPROFEN. [Suspect]
     Active Substance: IBUPROFEN
     Indication: MYALGIA
  4. LISINOPRIL + HIDROCLOROTIAZIDA [Concomitant]
     Active Substance: HYDROCHLOROTHIAZIDE\LISINOPRIL
     Indication: HYPERTENSION
     Dosage: 40/25 MG
  5. C-PAP [Concomitant]
     Indication: SLEEP DISORDER
     Dosage: AT NIGHT
  6. HUMIRA [Suspect]
     Active Substance: ADALIMUMAB
     Indication: CROHN^S DISEASE
     Dates: start: 20140603, end: 20140603
  7. NEUPRO [Concomitant]
     Active Substance: ROTIGOTINE
     Indication: RESTLESS LEGS SYNDROME
     Dosage: CHANGES DAILY AT NIGHT
  8. HYDROCODONE [Concomitant]
     Active Substance: HYDROCODONE
     Indication: RESTLESS LEGS SYNDROME
     Dosage: 5/325 MG AT NIGHT
  9. ALEVE [Suspect]
     Active Substance: NAPROXEN SODIUM
     Indication: ARTHRALGIA
     Dosage: 3 DOSAGE FORM
     Dates: start: 20140604
  10. ALEVE [Suspect]
     Active Substance: NAPROXEN SODIUM
     Indication: MYALGIA
  11. DIAZEPAM. [Concomitant]
     Active Substance: DIAZEPAM
     Indication: RESTLESS LEGS SYNDROME

REACTIONS (13)
  - Arthralgia [Not Recovered/Not Resolved]
  - Malaise [Unknown]
  - Chills [Unknown]
  - Pyrexia [Recovered/Resolved]
  - Spinal pain [Not Recovered/Not Resolved]
  - Tearfulness [Unknown]
  - Feeling hot [Unknown]
  - Myalgia [Not Recovered/Not Resolved]
  - Nausea [Recovered/Resolved]
  - Application site erythema [Recovering/Resolving]
  - Eructation [Unknown]
  - Diarrhoea [Not Recovered/Not Resolved]
  - Pain in extremity [Not Recovered/Not Resolved]

NARRATIVE: CASE EVENT DATE: 201406
